FAERS Safety Report 5368323-X (Version None)
Quarter: 2007Q2

REPORT INFORMATION
  Report Type: 
  Country: None (occurrence: None)
  Receive Date: 20070625
  Receipt Date: 20070615
  Transmission Date: 20071010
  Serious: Yes (Hospitalization, Other)
  Sender: FDA-Public Use
  Company Number: CZ-ABBOTT-07P-217-0361269-00

PATIENT
  Sex: Male
  Weight: 61.5 kg

DRUGS (6)
  1. ZEMPLAR [Suspect]
     Indication: RENAL OSTEODYSTROPHY
     Route: 042
     Dates: start: 20060802
  2. ZEMPLAR [Suspect]
  3. ACETYLSALICYLIC ACID SRT [Concomitant]
     Indication: CARDIOVASCULAR EVENT PROPHYLAXIS
     Route: 048
     Dates: start: 20050921
  4. COXTRAL [Concomitant]
     Indication: MUSCULOSKELETAL PAIN
     Route: 048
     Dates: start: 20070223
  5. SEVELAMER HYDROCHLORIDE [Concomitant]
     Indication: HYPERPHOSPHATAEMIA
     Route: 048
     Dates: start: 20060316
  6. AMLODIPINE BESYLATE [Concomitant]
     Indication: HYPERTENSION
     Route: 048
     Dates: start: 20061018

REACTIONS (11)
  - BACK PAIN [None]
  - BODY TEMPERATURE INCREASED [None]
  - C-REACTIVE PROTEIN INCREASED [None]
  - GASTROENTERITIS [None]
  - HYPERCALCAEMIA [None]
  - LEFT VENTRICULAR DYSFUNCTION [None]
  - MOVEMENT DISORDER [None]
  - MUSCULOSKELETAL PAIN [None]
  - SPINAL OSTEOARTHRITIS [None]
  - STAPHYLOCOCCAL SEPSIS [None]
  - WEIGHT DECREASED [None]
